FAERS Safety Report 24535898 (Version 1)
Quarter: 2024Q4

REPORT INFORMATION
  Report Type: Report from Study
  Country: UA (occurrence: UA)
  Receive Date: 20241022
  Receipt Date: 20241022
  Transmission Date: 20250115
  Serious: Yes (Death, Other)
  Sender: PFIZER
  Company Number: UA-TAKEDA-2024TUS105208

PATIENT
  Age: 59 Year
  Sex: Female

DRUGS (1)
  1. ADCETRIS [Suspect]
     Active Substance: BRENTUXIMAB VEDOTIN
     Indication: Hodgkin^s disease
     Dosage: 180 MILLIGRAM, 2/WEEK
     Route: 042
     Dates: start: 20241004, end: 20241017

REACTIONS (1)
  - Death [Fatal]
